FAERS Safety Report 17003044 (Version 2)
Quarter: 2020Q1

REPORT INFORMATION
  Report Type: Spontaneous
  Country: US (occurrence: US)
  Receive Date: 20191107
  Receipt Date: 20200103
  Transmission Date: 20200409
  Serious: Yes (Life-Threatening, Hospitalization, Other)
  Sender: FDA-Public Use
  Company Number: US-DRREDDYS-USA/USA/19/0115767

PATIENT
  Age: 76 Year
  Sex: Female

DRUGS (3)
  1. DOXORUBICIN HYDROCHLORIDE LIPOSOME INJECTION 20 MG/10 ML (2 MG/ML) AND [Concomitant]
     Active Substance: DOXORUBICIN HYDROCHLORIDE
     Indication: INFLAMMATORY CARCINOMA OF THE BREAST
  2. CYCLOPHOSPHAMIDE. [Concomitant]
     Active Substance: CYCLOPHOSPHAMIDE
     Indication: INFLAMMATORY CARCINOMA OF THE BREAST
  3. DOCETAXEL. [Suspect]
     Active Substance: DOCETAXEL
     Indication: INFLAMMATORY CARCINOMA OF THE BREAST

REACTIONS (6)
  - Capillary leak syndrome [Not Recovered/Not Resolved]
  - Generalised oedema [Unknown]
  - Pleural effusion [Unknown]
  - Atrial fibrillation [Unknown]
  - Shock [Unknown]
  - Pulmonary oedema [Not Recovered/Not Resolved]
